FAERS Safety Report 8068918-9 (Version None)
Quarter: 2012Q1

REPORT INFORMATION
  Report Type: 
  Country: None (occurrence: None)
  Receive Date: 20120125
  Receipt Date: 20120119
  Transmission Date: 20120608
  Serious: No
  Sender: FDA-Public Use
  Company Number: US-BIOGENIDEC-2012BI002471

PATIENT
  Age: 51 Year
  Sex: Female

DRUGS (1)
  1. AVONEX [Suspect]
     Indication: MULTIPLE SCLEROSIS
     Route: 030
     Dates: start: 20091101

REACTIONS (5)
  - PAIN IN EXTREMITY [None]
  - FEELING HOT [None]
  - HYPOAESTHESIA [None]
  - VIBRATORY SENSE INCREASED [None]
  - MYALGIA [None]
